FAERS Safety Report 6113730-0 (Version None)
Quarter: 2009Q1

REPORT INFORMATION
  Report Type: 
  Country: None (occurrence: None)
  Receive Date: 20090312
  Receipt Date: 20090305
  Transmission Date: 20090719
  Serious: Yes (Hospitalization, Other)
  Sender: FDA-Public Use
  Company Number: US-PFIZER INC-2009177659

PATIENT
  Sex: Female
  Weight: 82.54 kg

DRUGS (9)
  1. BLINDED *PLACEBO [Suspect]
     Indication: RHEUMATOID ARTHRITIS
     Dosage: UNK
     Route: 048
     Dates: start: 20081022, end: 20090216
  2. BLINDED CELECOXIB [Suspect]
     Indication: RHEUMATOID ARTHRITIS
     Dosage: UNK
     Route: 048
     Dates: start: 20081022, end: 20090216
  3. IBUPROFEN TABLETS [Suspect]
     Indication: RHEUMATOID ARTHRITIS
     Dosage: UNK
     Route: 048
     Dates: start: 20081022, end: 20090216
  4. NAPROXEN [Suspect]
     Indication: RHEUMATOID ARTHRITIS
     Dosage: UNK
     Route: 048
     Dates: start: 20081022, end: 20090216
  5. NEXIUM [Concomitant]
     Dosage: 40 MG, 2X/DAY
     Route: 048
     Dates: start: 20081022
  6. OS-CAL [Concomitant]
     Dosage: UNK
     Route: 048
     Dates: start: 20060101
  7. STOOL SOFTENER [Concomitant]
     Dosage: UNK
     Route: 048
     Dates: start: 20060101
  8. ASCORBIN [Concomitant]
     Dosage: UNK
     Route: 061
     Dates: start: 20080801
  9. ACETAMINOPHEN [Concomitant]
     Dosage: UNK
     Route: 048
     Dates: start: 20081104

REACTIONS (1)
  - MYOCARDIAL INFARCTION [None]
